FAERS Safety Report 6300795-6 (Version None)
Quarter: 2009Q3

REPORT INFORMATION
  Report Type: 
  Country: None (occurrence: None)
  Receive Date: 20090807
  Receipt Date: 20090729
  Transmission Date: 20100115
  Serious: Yes (Hospitalization)
  Sender: FDA-Public Use
  Company Number: JP-BRISTOL-MYERS SQUIBB COMPANY-14694426

PATIENT
  Age: 67 Year
  Sex: Female
  Weight: 38 kg

DRUGS (5)
  1. ERBITUX [Suspect]
     Indication: COLON CANCER
     Dosage: 500MG TAKEN ON 11JUN09,300MG ON 9JUL09,500MG FROM 25JUN09-2JUL09
     Route: 042
     Dates: start: 20090611, end: 20090611
  2. IRINOTECAN HCL [Suspect]
     Indication: COLON CANCER
     Dosage: 180MG TAKEN ON 11JUN09, 140MG FROM 16JUL09-CONT.
     Route: 042
     Dates: start: 20090611, end: 20090611
  3. POLARAMINE [Concomitant]
     Indication: PREMEDICATION
     Dosage: INITIAL TAKEN ON 11JUN09, 0.7143MG (5MG 1 IN 1 WK) FROM 25JUN09.
     Route: 042
     Dates: start: 20090611
  4. DECADRON [Concomitant]
     Indication: PREMEDICATION
     Dosage: INITIAL TAKEN ON 11JUN09, 1.1429MG (8MG 1 IN 1 WK) FROM 25JUN09.
     Route: 042
     Dates: start: 20090611, end: 20090611
  5. SEROTONE [Concomitant]
     Indication: ANTIEMETIC SUPPORTIVE CARE
     Dates: start: 20090611

REACTIONS (1)
  - NEUTROPHIL COUNT DECREASED [None]
